FAERS Safety Report 23122631 (Version 1)
Quarter: 2023Q4

REPORT INFORMATION
  Report Type: Spontaneous
  Country: FR (occurrence: US)
  Receive Date: 20231030
  Receipt Date: 20231030
  Transmission Date: 20240110
  Serious: No
  Sender: FDA-Public Use
  Company Number: FR-APOTEX-2023AP006737

PATIENT
  Age: 52 Year
  Sex: Female

DRUGS (5)
  1. SIROLIMUS [Suspect]
     Active Substance: SIROLIMUS
     Indication: Sarcoma metastatic
     Dosage: 5 MILLIGRAM, DAILY Q.3W
     Route: 065
     Dates: start: 20210929
  2. SIROLIMUS [Suspect]
     Active Substance: SIROLIMUS
     Indication: Metastatic uterine cancer
     Dosage: 7 MILLIGRAM
     Route: 065
  3. SIROLIMUS [Suspect]
     Active Substance: SIROLIMUS
     Dosage: 5 MILLIGRAM
     Route: 065
  4. GEMCITABINE [Concomitant]
     Active Substance: GEMCITABINE
     Indication: Product used for unknown indication
     Dosage: 800 MILLIGRAM/SQ. METER, ON DAY 1 AND DAY 8
     Route: 065
  5. MORPHINE [Concomitant]
     Active Substance: MORPHINE
     Indication: Product used for unknown indication
     Dosage: UNK
     Route: 065

REACTIONS (2)
  - Toxicity to various agents [Unknown]
  - Drug level abnormal [Unknown]
